FAERS Safety Report 25962923 (Version 1)
Quarter: 2025Q4

REPORT INFORMATION
  Report Type: Spontaneous
  Country: CN (occurrence: CN)
  Receive Date: 20251027
  Receipt Date: 20251027
  Transmission Date: 20260118
  Serious: Yes (Life-Threatening, Other)
  Sender: BAYER HEALTHCARE PHARMACEUTICALS INC.
  Company Number: CN-BAYER-2025A141308

PATIENT
  Age: 75 Year
  Sex: Female

DRUGS (2)
  1. ULTRAVIST [Suspect]
     Active Substance: IOPROMIDE
     Indication: Computerised tomogram
     Dosage: 300 G, ONCE
     Route: 042
     Dates: start: 20251014, end: 20251014
  2. ULTRAVIST [Suspect]
     Active Substance: IOPROMIDE
     Indication: Ovarian cancer

REACTIONS (6)
  - Anaphylactic shock [Recovering/Resolving]
  - Blood pressure decreased [Recovered/Resolved]
  - Electrocardiogram T wave inversion [None]
  - Dizziness [None]
  - Nausea [Recovering/Resolving]
  - Vomiting [Recovering/Resolving]

NARRATIVE: CASE EVENT DATE: 20251014
